FAERS Safety Report 5242782-5 (Version None)
Quarter: 2007Q1

REPORT INFORMATION
  Report Type: 
  Country: None (occurrence: None)
  Receive Date: 20070214
  Receipt Date: 20070129
  Transmission Date: 20070707
  Serious: Yes (Other)
  Sender: FDA-Public Use
  Company Number: 8021741

PATIENT
  Age: 56 Year
  Sex: Female

DRUGS (2)
  1. LEVETIRACETAM [Suspect]
     Indication: EPILEPSY
  2. TEGRETOL [Suspect]
     Indication: EPILEPSY
     Dosage: 500 MG 2/D PO
     Route: 048

REACTIONS (3)
  - ACCOMMODATION DISORDER [None]
  - CONVULSION [None]
  - DIPLOPIA [None]
